FAERS Safety Report 7705849-5 (Version None)
Quarter: 2011Q3

REPORT INFORMATION
  Report Type: 
  Country: None (occurrence: None)
  Receive Date: 20110824
  Receipt Date: 20110818
  Transmission Date: 20111222
  Serious: Yes (Other)
  Sender: FDA-Public Use
  Company Number: US-AMGEN-USASP2011038430

PATIENT
  Age: 71 Year
  Sex: Female

DRUGS (2)
  1. ENBREL [Suspect]
     Indication: RHEUMATOID ARTHRITIS
     Dosage: 50 MG, QWK
     Dates: start: 20090727
  2. METHOTREXATE [Concomitant]
     Dosage: 1 MG, QWK
     Dates: start: 19830101

REACTIONS (8)
  - DACRYOSTENOSIS ACQUIRED [None]
  - SKIN GRAFT [None]
  - RHEUMATOID ARTHRITIS [None]
  - BLOOD GLUCOSE INCREASED [None]
  - EYE IRRIGATION [None]
  - SCAR [None]
  - EYE DISORDER [None]
  - INJECTION SITE PAIN [None]
